FAERS Safety Report 12395716 (Version 4)
Quarter: 2016Q3

REPORT INFORMATION
  Report Type: Spontaneous
  Country: JP (occurrence: JP)
  Receive Date: 20160523
  Receipt Date: 20160720
  Transmission Date: 20161109
  Serious: Yes (Other)
  Sender: FDA-Public Use
  Company Number: JP-SHIRE-JP201605948

PATIENT
  Age: 81 Year
  Sex: Female

DRUGS (5)
  1. ZYLORIC [Concomitant]
     Active Substance: ALLOPURINOL
     Indication: PRODUCT USED FOR UNKNOWN INDICATION
     Dosage: 50 MG, UNKNOWN
     Route: 048
  2. MICARDIS [Concomitant]
     Active Substance: TELMISARTAN
     Indication: PRODUCT USED FOR UNKNOWN INDICATION
     Dosage: 20 MG, UNKNOWN
     Route: 048
  3. FOSRENOL [Suspect]
     Active Substance: LANTHANUM CARBONATE
     Dosage: 1500 MG, UNKNOWN (PER DAY)
     Route: 048
  4. FOSRENOL [Suspect]
     Active Substance: LANTHANUM CARBONATE
     Indication: HYPERPHOSPHATAEMIA
     Dosage: 750 MG, OTHER (AFTER EACH MEAL)
     Route: 048
  5. CRESTOR [Concomitant]
     Active Substance: ROSUVASTATIN CALCIUM
     Indication: PRODUCT USED FOR UNKNOWN INDICATION
     Dosage: 5 MG, UNKNOWN
     Route: 048

REACTIONS (3)
  - Gastric cancer [Unknown]
  - Medication residue present [Unknown]
  - Appendix cancer [Unknown]

NARRATIVE: CASE EVENT DATE: 20120220
